FAERS Safety Report 7928439-8 (Version None)
Quarter: 2011Q4

REPORT INFORMATION
  Report Type: 
  Country: None (occurrence: None)
  Receive Date: 20111118
  Receipt Date: 20111107
  Transmission Date: 20120403
  Serious: Yes (Hospitalization, Other)
  Sender: FDA-Public Use
  Company Number: PHHY2010JP60468

PATIENT
  Age: 55 Year
  Sex: Female
  Weight: 83.7 kg

DRUGS (12)
  1. NEORAL [Suspect]
     Dosage: 100 MG, DAILY
     Route: 048
  2. INFLIXIMAB [Concomitant]
     Dosage: 5 MG, UNK
  3. MAXACALCITOL [Concomitant]
  4. NEORAL [Suspect]
     Indication: PUSTULAR PSORIASIS
     Dosage: 400 MG, 5MG/KG DAILY
     Route: 048
  5. VITAMIN D [Concomitant]
  6. NEORAL [Suspect]
     Dosage: 150 MG, DAILY
     Route: 048
  7. ETRETINATE [Concomitant]
     Indication: PUSTULAR PSORIASIS
     Dosage: 40 MG, UNK
  8. ETRETINATE [Concomitant]
     Dosage: 30 MG, UNK
  9. DIFLUPREDNATE [Concomitant]
  10. NEORAL [Suspect]
     Dosage: 175 MG, DAILY
     Route: 048
  11. NEORAL [Suspect]
     Dosage: 75 MG, DAILY
  12. TACALCITOL [Concomitant]

REACTIONS (29)
  - BLOOD PRESSURE INCREASED [None]
  - HYPERCALCAEMIA [None]
  - WHITE BLOOD CELL COUNT INCREASED [None]
  - NEPHROPATHY [None]
  - RASH [None]
  - BLOOD CREATININE INCREASED [None]
  - FACE OEDEMA [None]
  - PROTEIN TOTAL DECREASED [None]
  - ERYTHEMA [None]
  - SKIN OEDEMA [None]
  - SKIN PLAQUE [None]
  - PYREXIA [None]
  - SKIN EROSION [None]
  - NEUTROPHIL COUNT INCREASED [None]
  - BLOOD URIC ACID INCREASED [None]
  - PNEUMONIA BACTERIAL [None]
  - BLOOD LACTATE DEHYDROGENASE INCREASED [None]
  - LYMPHOCYTE COUNT DECREASED [None]
  - DERMATITIS [None]
  - TOXICITY TO VARIOUS AGENTS [None]
  - BLOOD CALCIUM INCREASED [None]
  - BLOOD UREA INCREASED [None]
  - PUSTULAR PSORIASIS [None]
  - RED BLOOD CELL SEDIMENTATION RATE INCREASED [None]
  - RENAL DISORDER [None]
  - BLOOD ALBUMIN DECREASED [None]
  - PAIN IN EXTREMITY [None]
  - RASH PAPULAR [None]
  - BLOOD ALKALINE PHOSPHATASE INCREASED [None]
